FAERS Safety Report 9973136 (Version 2)
Quarter: 2014Q1

REPORT INFORMATION
  Report Type: Report from Study
  Country: US (occurrence: US)
  Receive Date: 20140306
  Receipt Date: 20140306
  Transmission Date: 20141002
  Serious: No
  Sender: FDA-Public Use
  Company Number: US-ABBVIE-13P-163-1062814-00

PATIENT
  Age: 38 Year
  Sex: Female
  Weight: 138.47 kg

DRUGS (18)
  1. HUMIRA [Suspect]
     Indication: CROHN^S DISEASE
     Dosage: INITIAL LOADING DOSE
     Route: 058
     Dates: start: 201303, end: 201303
  2. HUMIRA [Suspect]
     Route: 058
     Dates: start: 201304, end: 201304
  3. IMURAN [Concomitant]
     Indication: PRODUCT USED FOR UNKNOWN INDICATION
  4. MAXALT [Concomitant]
     Indication: MIGRAINE
  5. PROTONIX [Concomitant]
     Indication: GASTROOESOPHAGEAL REFLUX DISEASE
  6. APRISO [Concomitant]
     Indication: CROHN^S DISEASE
  7. BELLADONNA ALKALOIDS WITH PHENOBARBITAL [Concomitant]
     Indication: PRODUCT USED FOR UNKNOWN INDICATION
  8. CALCIUM CARBONATE PCH [Concomitant]
     Indication: PRODUCT USED FOR UNKNOWN INDICATION
  9. HYDROCODONE W/ACETAMINOPHEN [Concomitant]
     Indication: PRODUCT USED FOR UNKNOWN INDICATION
  10. PROBIOTIC [Concomitant]
     Indication: CROHN^S DISEASE
  11. NORTRIPTYLINE [Concomitant]
     Indication: PRODUCT USED FOR UNKNOWN INDICATION
  12. FOLIC ACID ALMUS [Concomitant]
     Indication: PRODUCT USED FOR UNKNOWN INDICATION
  13. FISH OIL NATURE MADE [Concomitant]
     Indication: PRODUCT USED FOR UNKNOWN INDICATION
  14. VITAMIN B12 [Concomitant]
     Indication: PRODUCT USED FOR UNKNOWN INDICATION
  15. VITAMIN D3 AGEPHA [Concomitant]
     Indication: PRODUCT USED FOR UNKNOWN INDICATION
  16. MVI [Concomitant]
     Indication: PRODUCT USED FOR UNKNOWN INDICATION
  17. MONODOX [Concomitant]
     Indication: PRODUCT USED FOR UNKNOWN INDICATION
  18. MERCAPTOPURINE DCI [Concomitant]
     Indication: CROHN^S DISEASE

REACTIONS (6)
  - Pain [Not Recovered/Not Resolved]
  - Dizziness [Not Recovered/Not Resolved]
  - Hypoaesthesia [Not Recovered/Not Resolved]
  - Vision blurred [Not Recovered/Not Resolved]
  - Neuropathy peripheral [Not Recovered/Not Resolved]
  - Paraesthesia [Not Recovered/Not Resolved]
